FAERS Safety Report 6000277-5 (Version None)
Quarter: 2008Q4

REPORT INFORMATION
  Report Type: 
  Country: None (occurrence: None)
  Receive Date: 20081211
  Receipt Date: 20081211
  Transmission Date: 20090506
  Serious: Yes (Other)
  Sender: FDA-Public Use
  Company Number: None

PATIENT
  Age: 53 Year
  Sex: Female
  Weight: 55.3388 kg

DRUGS (1)
  1. LODINE [Suspect]
     Indication: BACK INJURY
     Dosage: 1TABLET 2X A DAY PO
     Route: 048
     Dates: start: 20081208, end: 20081210

REACTIONS (9)
  - CHEST DISCOMFORT [None]
  - DIZZINESS [None]
  - DYSPEPSIA [None]
  - DYSPNOEA [None]
  - HEADACHE [None]
  - NAUSEA [None]
  - PALPITATIONS [None]
  - TREMOR [None]
  - VISION BLURRED [None]
